FAERS Safety Report 15160963 (Version 2)
Quarter: 2018Q3

REPORT INFORMATION
  Report Type: Report from Study
  Country: US (occurrence: US)
  Receive Date: 20180718
  Receipt Date: 20180731
  Transmission Date: 20181010
  Serious: Yes (Other)
  Sender: FDA-Public Use
  Company Number: US-GILEAD-2018-0350351

PATIENT
  Age: 71 Year
  Sex: Male

DRUGS (1)
  1. IDELALISIB [Suspect]
     Active Substance: IDELALISIB
     Indication: B-CELL LYMPHOMA
     Dosage: 150 MG, BID
     Route: 048
     Dates: start: 20160321

REACTIONS (8)
  - Fungal infection [Unknown]
  - Ear swelling [Unknown]
  - Squamous cell carcinoma [Unknown]
  - Insomnia [Unknown]
  - Alopecia [Unknown]
  - Ear neoplasm [Unknown]
  - Skin graft [Unknown]
  - Depression [Unknown]
